FAERS Safety Report 18524735 (Version 2)
Quarter: 2020Q4

REPORT INFORMATION
  Report Type: Spontaneous
  Country: JP (occurrence: JP)
  Receive Date: 20201120
  Receipt Date: 20201225
  Transmission Date: 20210114
  Serious: Yes (Other)
  Sender: FDA-Public Use
  Company Number: JP-AMGEN-JPNSP2020185154

PATIENT
  Sex: Female

DRUGS (2)
  1. BLINCYTO [Suspect]
     Active Substance: BLINATUMOMAB
     Dosage: 28 MICROGRAM, QD
     Route: 041
     Dates: start: 20201022, end: 20201023
  2. BLINCYTO [Suspect]
     Active Substance: BLINATUMOMAB
     Indication: B PRECURSOR TYPE ACUTE LEUKAEMIA
     Dosage: 9 MICROGRAM, QD
     Route: 041
     Dates: start: 20201015, end: 20201021

REACTIONS (5)
  - Neurological symptom [Recovered/Resolved]
  - Central nervous system leukaemia [Unknown]
  - Agnosia [Recovered/Resolved]
  - Apraxia [Recovered/Resolved]
  - Regressive behaviour [Recovered/Resolved]

NARRATIVE: CASE EVENT DATE: 2020
